FAERS Safety Report 8371713-4 (Version None)
Quarter: 2012Q2

REPORT INFORMATION
  Report Type: 
  Country: None (occurrence: None)
  Receive Date: 20120518
  Receipt Date: 20120515
  Transmission Date: 20120825
  Serious: Yes (Life-Threatening)
  Sender: FDA-Public Use
  Company Number: DE-ELI_LILLY_AND_COMPANY-DE201112000102

PATIENT
  Sex: Male
  Weight: 125 kg

DRUGS (4)
  1. METFORMIN HCL [Concomitant]
     Dosage: 1700 MG, UNKNOWN
     Route: 048
     Dates: start: 20100101
  2. RAMIPRIL [Concomitant]
     Indication: HYPERTENSION
     Dosage: UNK, UNKNOWN
     Dates: start: 20090101
  3. BYDUREON [Suspect]
     Indication: TYPE 2 DIABETES MELLITUS
     Dosage: 2 MG, WEEKLY (1/W)
     Dates: start: 20111109, end: 20111123
  4. BISOPROLOL FUMARATE [Concomitant]
     Indication: HYPERTENSION
     Dosage: 10 MG, UNKNOWN
     Route: 048
     Dates: start: 20100101

REACTIONS (1)
  - ANGIOEDEMA [None]
